FAERS Safety Report 14868623 (Version 1)
Quarter: 2018Q2

REPORT INFORMATION
  Report Type: Spontaneous
  Country: US (occurrence: US)
  Receive Date: 20180423
  Receipt Date: 20180423
  Transmission Date: 20180711
  Serious: No
  Sender: FDA-Public Use
  Company Number: None

PATIENT
  Age: 51 Year
  Sex: Female

DRUGS (1)
  1. IBRANCE [Suspect]
     Active Substance: PALBOCICLIB
     Dosage: 125MG QD 21D ON THE; ORAL
     Route: 048

REACTIONS (2)
  - White blood cell count decreased [None]
  - Red blood cell count decreased [None]

NARRATIVE: CASE EVENT DATE: 20180409
